FAERS Safety Report 4870441-7 (Version None)
Quarter: 2006Q1

REPORT INFORMATION
  Report Type: 
  Country: None (occurrence: None)
  Receive Date: 20060103
  Receipt Date: 20050511
  Transmission Date: 20060701
  Serious: No
  Sender: FDA-Public Use
  Company Number: US-BRISTOL-MYERS SQUIBB COMPANY-12964771

PATIENT
  Age: 25 Week
  Sex: Female
  Weight: 52 kg

DRUGS (8)
  1. TRAZODONE HCL [Suspect]
     Indication: PANIC DISORDER
     Route: 048
  2. TRAZODONE HCL [Suspect]
     Indication: DEPRESSION
     Route: 048
  3. TRAZODONE HCL [Suspect]
     Indication: ANXIETY
     Route: 048
  4. TRAZODONE HCL [Suspect]
     Indication: SLEEP DISORDER
     Route: 048
  5. ZOLOFT [Concomitant]
  6. PROVIGIL [Concomitant]
  7. PROVENTIL [Concomitant]
  8. ADVAIR DISKUS 250/50 [Concomitant]

REACTIONS (1)
  - MYALGIA [None]
